FAERS Safety Report 20926721 (Version 1)
Quarter: 2022Q2

REPORT INFORMATION
  Report Type: Spontaneous
  Country: US (occurrence: US)
  Receive Date: 20220607
  Receipt Date: 20220607
  Transmission Date: 20220721
  Serious: No
  Sender: FDA-Public Use
  Company Number: US-PERRIGO-21US024428

PATIENT
  Age: 45 Year
  Sex: Male
  Weight: 83.9 kg

DRUGS (4)
  1. MINOXIDIL [Suspect]
     Active Substance: MINOXIDIL
     Indication: Alopecia
     Dosage: 1/2 CAPFUL, 1 TO 2 TIMES DAILY
     Route: 061
     Dates: start: 202102, end: 20210829
  2. MINOXIDIL [Suspect]
     Active Substance: MINOXIDIL
     Dosage: 1/2 CAPFUL, 1 TO 2 TIMES DAILY
     Route: 061
     Dates: start: 20210830, end: 20210831
  3. MINOXIDIL [Suspect]
     Active Substance: MINOXIDIL
     Dosage: 1/2 CAPFUL, 1 TO 2 TIMES DAILY
     Route: 061
     Dates: start: 20210902
  4. MINOXIDIL [Suspect]
     Active Substance: MINOXIDIL
     Dosage: UNK

REACTIONS (3)
  - Dandruff [Recovering/Resolving]
  - Application site dryness [Recovering/Resolving]
  - Application site pruritus [Recovering/Resolving]

NARRATIVE: CASE EVENT DATE: 20210831
